FAERS Safety Report 9030326 (Version 1)
Quarter: 2013Q1

REPORT INFORMATION
  Report Type: Spontaneous
  Country: US (occurrence: US)
  Receive Date: 20130122
  Receipt Date: 20130122
  Transmission Date: 20140127
  Serious: Yes (Other)
  Sender: FDA-Public Use
  Company Number: US-PFIZER INC-2013020668

PATIENT
  Age: 53 Year
  Sex: Female
  Weight: 136 kg

DRUGS (2)
  1. TOVIAZ [Suspect]
     Indication: URINARY INCONTINENCE
     Dosage: 4 MG, 2X/DAY
     Route: 048
  2. TOVIAZ [Suspect]
     Dosage: 8 MG, 2X/DAY
     Route: 048
     Dates: end: 201212

REACTIONS (4)
  - Back disorder [Unknown]
  - Drug administration error [Unknown]
  - Dry mouth [Unknown]
  - Urinary incontinence [Unknown]
